FAERS Safety Report 25329397 (Version 2)
Quarter: 2025Q2

REPORT INFORMATION
  Report Type: Spontaneous
  Country: JP (occurrence: JP)
  Receive Date: 20250519
  Receipt Date: 20250523
  Transmission Date: 20250717
  Serious: Yes (Death, Life-Threatening, Hospitalization, Other)
  Sender: SANOFI AVENTIS
  Company Number: JP-MLMSERVICE-20250508-PI500448-00249-1

PATIENT
  Age: 75 Year
  Sex: Male
  Weight: 49.6 kg

DRUGS (18)
  1. OXALIPLATIN [Suspect]
     Active Substance: OXALIPLATIN
     Indication: Colon cancer stage IV
     Dosage: 85 MG/M2, QOW
     Dates: start: 202204, end: 202311
  2. DEXAMETHASONE [Suspect]
     Active Substance: DEXAMETHASONE
     Indication: Colon cancer stage IV
     Dosage: 6.6 MG, QOW (THE TOTAL DOSE OF DEX ADMINISTERED WAS 264 MG, EQUIVALENT TO 1,760 MG OF PREDNISOLONE (
     Dates: start: 202204, end: 202311
  3. FLUOROURACIL [Suspect]
     Active Substance: FLUOROURACIL
     Indication: Colon cancer stage IV
     Dosage: 400 MG/M2, QOW, BOLUS INFUSION
     Dates: start: 202204, end: 202311
  4. FLUOROURACIL [Suspect]
     Active Substance: FLUOROURACIL
     Dates: start: 202204
  5. BEVACIZUMAB [Suspect]
     Active Substance: BEVACIZUMAB
     Indication: Colon cancer stage IV
     Dosage: 5 MG/KG, QOW
     Dates: start: 202204, end: 202311
  6. LEUCOVORIN [Suspect]
     Active Substance: LEUCOVORIN\LEUCOVORIN CALCIUM
     Indication: Colon cancer stage IV
     Dosage: 200 MG/M2, QOW
     Dates: start: 202204, end: 202311
  7. ASPIRIN [Concomitant]
     Active Substance: ASPIRIN
  8. LANSOPRAZOLE [Concomitant]
     Active Substance: LANSOPRAZOLE
  9. TELMISARTAN [Concomitant]
     Active Substance: TELMISARTAN
  10. AMLODIPINE [Concomitant]
     Active Substance: AMLODIPINE BESYLATE
  11. NICORANDIL [Concomitant]
     Active Substance: NICORANDIL
  12. EZETIMIBE [Concomitant]
     Active Substance: EZETIMIBE
  13. ROSUVASTATIN [Concomitant]
     Active Substance: ROSUVASTATIN
  14. BISOPROLOL FUMARATE [Concomitant]
     Active Substance: BISOPROLOL FUMARATE
  15. FEBUXOSTAT [Concomitant]
     Active Substance: FEBUXOSTAT
  16. URSODIOL [Concomitant]
     Active Substance: URSODIOL
  17. MAGNESIUM OXIDE [Concomitant]
     Active Substance: MAGNESIUM OXIDE
  18. DULOXETINE [Concomitant]
     Active Substance: DULOXETINE

REACTIONS (15)
  - Febrile neutropenia [Fatal]
  - Pyrexia [Fatal]
  - Neutropenia [Fatal]
  - Pneumocystis jirovecii pneumonia [Fatal]
  - Fatigue [Fatal]
  - Mobility decreased [Fatal]
  - Lung opacity [Fatal]
  - Emphysema [Fatal]
  - Pneumonia [Fatal]
  - Lymphopenia [Fatal]
  - Acute respiratory distress syndrome [Fatal]
  - Respiratory distress [Fatal]
  - Respiratory disorder [Fatal]
  - Dyspnoea [Fatal]
  - Cytomegalovirus infection [Fatal]

NARRATIVE: CASE EVENT DATE: 20231101
